FAERS Safety Report 9658770 (Version 1)
Quarter: 2013Q4

REPORT INFORMATION
  Report Type: Spontaneous
  Country: US (occurrence: US)
  Receive Date: 20131030
  Receipt Date: 20131030
  Transmission Date: 20140711
  Serious: No
  Sender: FDA-Public Use
  Company Number: US-PURDUE-USA-2011-0078893

PATIENT
  Age: 37 Year
  Sex: Female
  Weight: 65.76 kg

DRUGS (2)
  1. OXYCONTIN (NDA 22-272) [Suspect]
     Indication: BACK PAIN
  2. NORCO [Concomitant]
     Indication: PAIN

REACTIONS (8)
  - Drug withdrawal syndrome [Unknown]
  - Intentional drug misuse [Unknown]
  - Dysstasia [Unknown]
  - Neuralgia [Unknown]
  - Pain [Unknown]
  - Back pain [Unknown]
  - Drug screen negative [Unknown]
  - Drug ineffective [Unknown]
